FAERS Safety Report 20047036 (Version 1)
Quarter: 2021Q4

REPORT INFORMATION
  Report Type: Report from Study
  Country: US (occurrence: US)
  Receive Date: 20211109
  Receipt Date: 20211109
  Transmission Date: 20220303
  Serious: Yes (Hospitalization)
  Sender: FDA-Public Use
  Company Number: US-HTU-2021US023735

PATIENT
  Sex: Male

DRUGS (1)
  1. TRUSELTIQ [Suspect]
     Active Substance: INFIGRATINIB
     Indication: Cholangiocarcinoma
     Dosage: 100MG DAILY ON DAYS 1-21 EVERY 28
     Dates: start: 20211009

REACTIONS (3)
  - Dehydration [Unknown]
  - Fatigue [Unknown]
  - Product dose omission in error [Unknown]
